FAERS Safety Report 15023292 (Version 2)
Quarter: 2018Q2

REPORT INFORMATION
  Report Type: Report from Study
  Country: ES (occurrence: ES)
  Receive Date: 20180618
  Receipt Date: 20180619
  Transmission Date: 20180711
  Serious: Yes (Hospitalization)
  Sender: FDA-Public Use
  Company Number: ES-PFIZER INC-2018238778

PATIENT
  Age: 53 Year
  Sex: Male

DRUGS (13)
  1. AFLIBERCEPT [Suspect]
     Active Substance: AFLIBERCEPT
     Indication: COLORECTAL CANCER METASTATIC
     Dosage: 320 MG, CYCLIC
     Route: 041
     Dates: start: 20150304, end: 20150304
  2. 5-FU [Suspect]
     Active Substance: FLUOROURACIL
     Indication: COLORECTAL CANCER METASTATIC
     Dosage: 4800 MG, CYCLIC
     Route: 041
     Dates: start: 20150304, end: 20150304
  3. 5-FU [Suspect]
     Active Substance: FLUOROURACIL
     Dosage: 4800 MG, CYCLIC
     Route: 041
     Dates: start: 20150304
  4. 5-FU [Suspect]
     Active Substance: FLUOROURACIL
     Dosage: 4800 MG, CYCLIC
     Route: 041
     Dates: start: 20150527
  5. AFLIBERCEPT [Suspect]
     Active Substance: AFLIBERCEPT
     Dosage: 320 MG, CYCLIC
     Route: 041
     Dates: start: 20150527, end: 20150527
  6. 5-FU [Suspect]
     Active Substance: FLUOROURACIL
     Dosage: 800 MG, CYCLIC
     Route: 040
     Dates: start: 20150304, end: 20150304
  7. IRINOTECAN HCL [Suspect]
     Active Substance: IRINOTECAN HYDROCHLORIDE
     Dosage: 360 MG, CYCLIC
     Route: 041
     Dates: start: 20150527, end: 20150527
  8. IRINOTECAN HCL [Suspect]
     Active Substance: IRINOTECAN HYDROCHLORIDE
     Indication: COLORECTAL CANCER METASTATIC
     Dosage: 360 MG, CYCLIC
     Route: 041
     Dates: start: 20150304, end: 20150304
  9. LEUCOVORIN /00566701/ [Suspect]
     Active Substance: LEUCOVORIN
     Indication: COLORECTAL CANCER METASTATIC
     Dosage: 800 MG, CYCLIC
     Route: 041
     Dates: start: 20150304, end: 20150304
  10. 5-FU [Suspect]
     Active Substance: FLUOROURACIL
     Dosage: 800 MG, CYCLIC
     Route: 040
     Dates: start: 20150527, end: 20150527
  11. LIDOCAINE VISCOUS [Concomitant]
     Active Substance: LIDOCAINE HYDROCHLORIDE
     Dosage: UNK
     Route: 065
     Dates: start: 20150601, end: 20150615
  12. LEUCOVORIN /00566701/ [Suspect]
     Active Substance: LEUCOVORIN
     Dosage: 800 MG, CYCLIC
     Route: 041
     Dates: start: 20150527, end: 20150527
  13. G-CSF [Concomitant]
     Active Substance: GRANULOCYTE COLONY-STIMULATING FACTOR NOS
     Indication: PROPHYLAXIS
     Dosage: UNK
     Route: 065
     Dates: start: 20150529, end: 20150529

REACTIONS (4)
  - Rectal haemorrhage [Recovered/Resolved]
  - Stomatitis [Recovered/Resolved]
  - Febrile neutropenia [Recovered/Resolved]
  - Weight decreased [Not Recovered/Not Resolved]

NARRATIVE: CASE EVENT DATE: 20150527
